FAERS Safety Report 9430486 (Version 3)
Quarter: 2013Q3

REPORT INFORMATION
  Report Type: Spontaneous
  Country: JP (occurrence: JP)
  Receive Date: 20130730
  Receipt Date: 20130910
  Transmission Date: 20140515
  Serious: Yes (Other)
  Sender: FDA-Public Use
  Company Number: JP-GLAXOSMITHKLINE-B0911157A

PATIENT
  Age: 52 Year
  Sex: Female

DRUGS (7)
  1. ZANTAC [Suspect]
     Indication: PROPHYLAXIS
     Dosage: 50MG PER DAY
     Route: 042
     Dates: start: 201106, end: 20111125
  2. ZANTAC [Suspect]
     Indication: PROPHYLAXIS
     Dosage: 50MG PER DAY
     Route: 042
     Dates: start: 201304, end: 20130724
  3. DECADRON [Concomitant]
     Indication: PROPHYLAXIS
     Route: 065
  4. KYTRIL [Concomitant]
     Indication: PROPHYLAXIS
     Route: 065
  5. TAXOL [Concomitant]
     Indication: CHEMOTHERAPY
     Route: 042
     Dates: start: 20110601
  6. PARAPLATIN [Concomitant]
     Indication: CHEMOTHERAPY
     Route: 042
     Dates: start: 20110601
  7. GEMZAR [Concomitant]
     Route: 042
     Dates: start: 201212, end: 20130322

REACTIONS (11)
  - Shock [Recovered/Resolved]
  - Ascites [Unknown]
  - Recurrent cancer [Unknown]
  - Dyspepsia [Recovered/Resolved]
  - Hyperhidrosis [Recovered/Resolved]
  - Abdominal distension [Recovered/Resolved]
  - Cyanosis [Recovered/Resolved]
  - Vomiting [Recovered/Resolved]
  - Wheezing [Recovered/Resolved]
  - Blood pressure decreased [Recovered/Resolved]
  - Dyspnoea [Recovered/Resolved]
